FAERS Safety Report 17675140 (Version 1)
Quarter: 2020Q2

REPORT INFORMATION
  Report Type: Spontaneous
  Country: US (occurrence: US)
  Receive Date: 20200416
  Receipt Date: 20200416
  Transmission Date: 20200714
  Serious: No
  Sender: FDA-Public Use
  Company Number: US-JNJFOC-20200404099

PATIENT

DRUGS (2)
  1. WOMENS ROGAINE [Suspect]
     Active Substance: MINOXIDIL
     Indication: ALOPECIA
     Dosage: HALF OF A CAP
     Route: 061
     Dates: start: 202001
  2. WOMENS ROGAINE [Suspect]
     Active Substance: MINOXIDIL
     Dosage: HALF OF A CAP
     Route: 061
     Dates: start: 201910

REACTIONS (2)
  - Alopecia [Not Recovered/Not Resolved]
  - Incorrect dose administered [Unknown]
